FAERS Safety Report 8339172-5 (Version None)
Quarter: 2012Q2

REPORT INFORMATION
  Report Type: 
  Country: None (occurrence: None)
  Receive Date: 20120507
  Receipt Date: 20120430
  Transmission Date: 20120825
  Serious: No
  Sender: FDA-Public Use
  Company Number: US-PFIZER INC-2012094764

PATIENT

DRUGS (2)
  1. CARDIZEM [Suspect]
     Dosage: UNK
  2. BENZYLPENICILLIN POTASSIUM [Suspect]

REACTIONS (3)
  - NAUSEA [None]
  - HEADACHE [None]
  - MALAISE [None]
